FAERS Safety Report 23974391 (Version 1)
Quarter: 2024Q2

REPORT INFORMATION
  Report Type: Spontaneous
  Country: JP (occurrence: JP)
  Receive Date: 20240614
  Receipt Date: 20240614
  Transmission Date: 20240715
  Serious: Yes (Other)
  Sender: FDA-Public Use
  Company Number: JP-HALEON-2181214

PATIENT
  Age: 6 Decade
  Sex: Male

DRUGS (1)
  1. ALLI [Suspect]
     Active Substance: ORLISTAT
     Indication: Fat tissue decreased
     Dosage: AMOUNT OF DAILY DOSE (1 DOSE X 1 NUMBER OF TIMES PER DAY): 1 CAPSULE AT A TIME (ONLY WITH OILY ME...
     Route: 048

REACTIONS (3)
  - Haematochezia [Recovering/Resolving]
  - Anal incontinence [Recovering/Resolving]
  - Inappropriate schedule of product administration [Unknown]

NARRATIVE: CASE EVENT DATE: 20240610
